FAERS Safety Report 8393119-4 (Version None)
Quarter: 2012Q2

REPORT INFORMATION
  Report Type: 
  Country: None (occurrence: None)
  Receive Date: 20120529
  Receipt Date: 20120501
  Transmission Date: 20120825
  Serious: No
  Sender: FDA-Public Use
  Company Number: US-ABBOTT-12P-163-0932474-00

PATIENT
  Age: 69 Year
  Sex: Male
  Weight: 95.34 kg

DRUGS (4)
  1. ANDROGEL [Suspect]
     Indication: BLOOD TESTOSTERONE DECREASED
     Dosage: 2 PUMPS PER DAY  2 PUMPS PER DAY
     Dates: start: 20120101, end: 20120401
  2. AMLODIPINE BESYLATE [Concomitant]
     Indication: HYPERTENSION
  3. DIOVAN [Concomitant]
     Indication: HYPERTENSION
  4. ANDROGEL [Suspect]
     Dosage: 1 PUMP PER DAY
     Dates: start: 20120101, end: 20120401

REACTIONS (1)
  - OEDEMA PERIPHERAL [None]
